FAERS Safety Report 6201610-1 (Version None)
Quarter: 2009Q2

REPORT INFORMATION
  Report Type: 
  Country: None (occurrence: None)
  Receive Date: 20090526
  Receipt Date: 20090518
  Transmission Date: 20091009
  Serious: No
  Sender: FDA-Public Use
  Company Number: US-B.I. PHARMACEUTICALS,INC./RIDGEFIELD-2009-BP-06181BP

PATIENT
  Age: 83 Year
  Sex: Male

DRUGS (1)
  1. AGGRENOX [Suspect]
     Indication: TRANSIENT ISCHAEMIC ATTACK

REACTIONS (5)
  - HYPOAESTHESIA [None]
  - HYPOAESTHESIA FACIAL [None]
  - NAUSEA [None]
  - VISION BLURRED [None]
  - VOMITING [None]
